FAERS Safety Report 4825081-2 (Version None)
Quarter: 2005Q4

REPORT INFORMATION
  Report Type: 
  Country: None (occurrence: None)
  Receive Date: 20051109
  Receipt Date: 20051109
  Transmission Date: 20060501
  Serious: Yes (Other)
  Sender: FDA-Public Use
  Company Number: None

PATIENT

DRUGS (2)
  1. AMIODARONE    200 MG [Suspect]
     Indication: ATRIAL FIBRILLATION
     Dosage: 200 MG    QD   PO
     Route: 048
     Dates: start: 20050413, end: 20051010
  2. DIGOXIN [Suspect]
     Indication: ATRIAL FIBRILLATION
     Dosage: 0.25 MG   QD   PO
     Route: 048

REACTIONS (3)
  - FEELING ABNORMAL [None]
  - VISION BLURRED [None]
  - VISUAL ACUITY REDUCED [None]
